FAERS Safety Report 13349113 (Version 8)
Quarter: 2020Q3

REPORT INFORMATION
  Report Type: Spontaneous
  Country: US (occurrence: US)
  Receive Date: 20170320
  Receipt Date: 20200709
  Transmission Date: 20201102
  Serious: No
  Sender: FDA-Public Use
  Company Number: PHEH2017US008096

PATIENT
  Sex: Female
  Weight: 45.35 kg

DRUGS (2)
  1. ZOFRAN [Suspect]
     Active Substance: ONDANSETRON HYDROCHLORIDE
     Indication: MORNING SICKNESS
     Route: 048
  2. ONDANSETRON TEVA [Suspect]
     Active Substance: ONDANSETRON
     Indication: MORNING SICKNESS
     Dosage: 08 MG, UNK
     Route: 048
     Dates: start: 20070618, end: 200708

REACTIONS (9)
  - Underweight [Unknown]
  - Injury [Unknown]
  - Product use in unapproved indication [Unknown]
  - Oropharyngeal pain [Unknown]
  - Emotional distress [Unknown]
  - Nasal congestion [Unknown]
  - Maternal exposure during pregnancy [Unknown]
  - Pain [Unknown]
  - Anxiety [Unknown]
